FAERS Safety Report 15313235 (Version 1)
Quarter: 2018Q3

REPORT INFORMATION
  Report Type: Other
  Country: None (occurrence: DE)
  Receive Date: 20180823
  Receipt Date: 20180823
  Transmission Date: 20181010
  Serious: Yes (Other)
  Sender: FDA-Public Use
  Company Number: DE-LABORATOIRE HRA PHARMA-2054172

PATIENT
  Age: 31 Year
  Sex: Female
  Weight: 60 kg

DRUGS (2)
  1. ELLA [Suspect]
     Active Substance: ULIPRISTAL ACETATE
     Indication: POST COITAL CONTRACEPTION
     Route: 048
     Dates: start: 20180621, end: 20180621
  2. LEVOTHYROXINE. [Concomitant]
     Active Substance: LEVOTHYROXINE

REACTIONS (3)
  - Abortion spontaneous [None]
  - Vaginal haemorrhage [None]
  - Unintended pregnancy [None]

NARRATIVE: CASE EVENT DATE: 20180728
